FAERS Safety Report 25366957 (Version 3)
Quarter: 2025Q3

REPORT INFORMATION
  Report Type: Report from Study
  Country: US (occurrence: US)
  Receive Date: 20250528
  Receipt Date: 20250829
  Transmission Date: 20251021
  Serious: No
  Sender: SUNOVION
  Company Number: US-SMPA-2025SPA005696AA

PATIENT
  Age: 66 Year
  Sex: Male

DRUGS (7)
  1. ORGOVYX [Suspect]
     Active Substance: RELUGOLIX
     Indication: Prostate cancer
     Route: 048
  2. ORGOVYX [Suspect]
     Active Substance: RELUGOLIX
     Dosage: 120 MG, QD
     Route: 048
     Dates: start: 202504
  3. ALPRAZOLAM [Concomitant]
     Active Substance: ALPRAZOLAM
  4. BELBUCA [Concomitant]
     Active Substance: BUPRENORPHINE HYDROCHLORIDE
     Route: 002
  5. METHOCARBAMOL [Concomitant]
     Active Substance: METHOCARBAMOL
  6. TADALAFIL [Concomitant]
     Active Substance: TADALAFIL
  7. TAMSULOSIN [Concomitant]
     Active Substance: TAMSULOSIN

REACTIONS (9)
  - Urinary retention [Unknown]
  - Abdominal distension [Unknown]
  - Pollakiuria [Unknown]
  - Pain [Unknown]
  - Hot flush [Unknown]
  - Diarrhoea [Unknown]
  - Asthenia [Unknown]
  - Fatigue [Unknown]
  - Back pain [Unknown]
